FAERS Safety Report 8384109-6 (Version None)
Quarter: 2012Q2

REPORT INFORMATION
  Report Type: 
  Country: None (occurrence: None)
  Receive Date: 20120524
  Receipt Date: 20120517
  Transmission Date: 20120825
  Serious: Yes (Hospitalization)
  Sender: FDA-Public Use
  Company Number: CA-ROCHE-1070277

PATIENT
  Sex: Female
  Weight: 67 kg

DRUGS (13)
  1. ARTHROTEC [Concomitant]
  2. NORVASC [Concomitant]
  3. NOVOSEMIDE [Concomitant]
  4. PREDNISONE [Concomitant]
  5. AMLODIPINE BESYLATE [Concomitant]
  6. ALENDRONATE SODIUM [Concomitant]
  7. FOLIC ACID [Concomitant]
  8. FOSAMAX [Concomitant]
  9. ARAVA [Concomitant]
  10. OXYCONTIN [Concomitant]
  11. VITAMIN D [Concomitant]
  12. ACTEMRA [Suspect]
     Indication: RHEUMATOID ARTHRITIS
     Route: 042
     Dates: start: 20110926, end: 20120411
  13. PLAQUENIL [Concomitant]

REACTIONS (2)
  - DYSPNOEA [None]
  - PULMONARY OEDEMA [None]
